FAERS Safety Report 18731224 (Version 1)
Quarter: 2021Q1

REPORT INFORMATION
  Report Type: Report from Study
  Country: US (occurrence: US)
  Receive Date: 20210112
  Receipt Date: 20210112
  Transmission Date: 20210419
  Serious: Yes (Hospitalization)
  Sender: FDA-Public Use
  Company Number: US-JNJFOC-20210112663

PATIENT
  Age: 48 Year
  Sex: Male

DRUGS (2)
  1. SPRAVATO [Suspect]
     Active Substance: ESKETAMINE
     Indication: DEPRESSION
     Dosage: 56MG. 4 TOTAL DOSES
     Dates: start: 20201016, end: 20201027
  2. SPRAVATO [Suspect]
     Active Substance: ESKETAMINE
     Dosage: 84MG, 3 TOTAL DOSES
     Dates: start: 20201030

REACTIONS (1)
  - Dental operation [Unknown]
